FAERS Safety Report 8520960-7 (Version None)
Quarter: 2012Q3

REPORT INFORMATION
  Report Type: 
  Country: None (occurrence: None)
  Receive Date: 20120706
  Receipt Date: 20120622
  Transmission Date: 20120928
  Serious: Yes (Other)
  Sender: FDA-Public Use
  Company Number: ABR_00503_2012

PATIENT
  Sex: Female

DRUGS (2)
  1. ERYTHROMYCIN ETHLSUCCINATE [Suspect]
     Indication: ORAL INFECTION
     Dosage: (500 MG 1X/8 HOURS ORAL)
     Route: 048
     Dates: start: 20120604, end: 20120611
  2. ATENOLOL [Concomitant]

REACTIONS (2)
  - TINNITUS [None]
  - DEAFNESS [None]
